FAERS Safety Report 15623817 (Version 5)
Quarter: 2018Q4

REPORT INFORMATION
  Report Type: Spontaneous
  Country: JP (occurrence: JP)
  Receive Date: 20181115
  Receipt Date: 20181203
  Transmission Date: 20190205
  Serious: Yes (Life-Threatening, Hospitalization, Disabling, Other)
  Sender: FDA-Public Use
  Company Number: JP-ASTRAZENECA-2018SF42715

PATIENT
  Age: 66 Year
  Sex: Male
  Weight: 67 kg

DRUGS (7)
  1. PERSANTIN [Concomitant]
     Active Substance: DIPYRIDAMOLE
     Indication: NON-SMALL CELL LUNG CANCER
     Dates: start: 20180725, end: 20180801
  2. LANSOPRAZOLE. [Concomitant]
     Active Substance: LANSOPRAZOLE
     Route: 048
     Dates: end: 20181105
  3. CANAGLU [Concomitant]
     Active Substance: CANAGLIFLOZIN
     Indication: TYPE 2 DIABETES MELLITUS
     Route: 048
     Dates: end: 20181105
  4. MIYA-BM [Concomitant]
     Active Substance: CLOSTRIDIUM BUTYRICUM SPORES STRAIN M-55
     Dosage: DOSE UNKNOWN
     Route: 048
     Dates: end: 20181105
  5. VALSARTAN. [Concomitant]
     Active Substance: VALSARTAN
     Indication: HYPERTENSION
     Route: 048
     Dates: end: 20181105
  6. IMFINZI [Suspect]
     Active Substance: DURVALUMAB
     Indication: NON-SMALL CELL LUNG CANCER
     Route: 041
     Dates: start: 20180914, end: 20181005
  7. TENELIA [Concomitant]
     Active Substance: TENELIGLIPTIN
     Indication: TYPE 2 DIABETES MELLITUS
     Route: 048
     Dates: end: 20181105

REACTIONS (9)
  - Autoimmune neuropathy [Not Recovered/Not Resolved]
  - Pneumonia aspiration [Unknown]
  - Diarrhoea [Recovering/Resolving]
  - Personality change [Not Recovered/Not Resolved]
  - Hyponatraemia [Recovering/Resolving]
  - Bulbar palsy [Unknown]
  - Seizure [Unknown]
  - Dysphagia [Not Recovered/Not Resolved]
  - Limbic encephalitis [Not Recovered/Not Resolved]

NARRATIVE: CASE EVENT DATE: 2018
